FAERS Safety Report 21553371 (Version 1)
Quarter: 2022Q4

REPORT INFORMATION
  Report Type: Spontaneous
  Country: TR (occurrence: TR)
  Receive Date: 20221104
  Receipt Date: 20221104
  Transmission Date: 20230112
  Serious: Yes (Death, Other)
  Sender: FDA-Public Use
  Company Number: TR-SA-SAC20221103001122

PATIENT

DRUGS (3)
  1. LEMTRADA [Suspect]
     Active Substance: ALEMTUZUMAB
     Route: 065
  2. LIORESAL [Concomitant]
     Active Substance: BACLOFEN
     Dosage: 10 MG
  3. SECITA [Concomitant]
     Dosage: 20 MG

REACTIONS (2)
  - Death [Fatal]
  - Herpes virus infection [Unknown]
